FAERS Safety Report 23632546 (Version 1)
Quarter: 2024Q1

REPORT INFORMATION
  Report Type: Spontaneous
  Country: US (occurrence: None)
  Receive Date: 20240313
  Receipt Date: 20240313
  Transmission Date: 20240410
  Serious: Yes (Hospitalization)
  Sender: FDA-Public Use
  Company Number: None

PATIENT
  Sex: Female

DRUGS (4)
  1. TADALAFIL [Suspect]
     Active Substance: TADALAFIL
     Indication: Pulmonary arterial hypertension
     Dosage: 40MG QD PO
     Route: 048
     Dates: start: 202206
  2. SODIUM CHLOR (100ML/BAG) [Concomitant]
  3. AMBRISENTAN [Concomitant]
     Active Substance: AMBRISENTAN
  4. VELETRI SDV [Concomitant]

REACTIONS (2)
  - Gastrointestinal haemorrhage [None]
  - Transfusion [None]
